FAERS Safety Report 9462399 (Version 1)
Quarter: 2013Q3

REPORT INFORMATION
  Report Type: Report from Study
  Country: US (occurrence: US)
  Receive Date: 20130816
  Receipt Date: 20130816
  Transmission Date: 20140515
  Serious: Yes (Other)
  Sender: FDA-Public Use
  Company Number: CHPA2013US012719

PATIENT
  Sex: Female

DRUGS (1)
  1. PREVACID 24HR 15MG [Suspect]
     Dosage: UNK, UNK
     Dates: end: 201306

REACTIONS (8)
  - Ankle fracture [Unknown]
  - Fall [Unknown]
  - Asthenia [Unknown]
  - Blood pressure increased [Unknown]
  - Pain in extremity [Unknown]
  - Palpitations [Unknown]
  - Arthralgia [Unknown]
  - Incorrect drug administration duration [Unknown]
